FAERS Safety Report 9049667 (Version 2)
Quarter: 2013Q2

REPORT INFORMATION
  Report Type: Spontaneous
  Country: US (occurrence: US)
  Receive Date: 20130205
  Receipt Date: 20130403
  Transmission Date: 20140414
  Serious: Yes (Death, Hospitalization)
  Sender: FDA-Public Use
  Company Number: US-B.I. PHARMACEUTICALS,INC./RIDGEFIELD-2013-BI-02662BP

PATIENT
  Age: 104 Year
  Sex: Male

DRUGS (1)
  1. PRADAXA [Suspect]
     Dosage: 150 MG

REACTIONS (3)
  - Procedural complication [Fatal]
  - Gastrointestinal haemorrhage [Unknown]
  - Pneumonia [Unknown]
